FAERS Safety Report 8450884-5 (Version None)
Quarter: 2012Q2

REPORT INFORMATION
  Report Type: 
  Country: None (occurrence: None)
  Receive Date: 20120615
  Receipt Date: 20120615
  Transmission Date: 20120825
  Serious: Yes (Life-Threatening)
  Sender: FDA-Public Use
  Company Number: None

PATIENT
  Sex: Male

DRUGS (1)
  1. HEPARIN [Suspect]
     Indication: CARDIAC OPERATION
     Dosage: 1,000 UNITS/ML 30ML PEFUSIONIS  IV
     Route: 042
     Dates: start: 20120406

REACTIONS (1)
  - PULMONARY EMBOLISM [None]
